FAERS Safety Report 15084796 (Version 4)
Quarter: 2019Q4

REPORT INFORMATION
  Report Type: Report from Study
  Country: US (occurrence: US)
  Receive Date: 20180628
  Receipt Date: 20191118
  Transmission Date: 20200122
  Serious: Yes (Death, Hospitalization)
  Sender: FDA-Public Use
  Company Number: US-ACTELION-A-NJ2018-166674

PATIENT
  Age: 1 Year
  Sex: Male
  Weight: 14.06 kg

DRUGS (36)
  1. SODIUM CHLORIDE. [Concomitant]
     Active Substance: SODIUM CHLORIDE
     Indication: UPPER RESPIRATORY TRACT CONGESTION
  2. BOSENTAN TABLET 32 MG PED US [Suspect]
     Active Substance: BOSENTAN
     Indication: PULMONARY ARTERIAL HYPERTENSION
     Dosage: 32 MG, BID VIA G-TUBE, DISSOLVE TABLET IN WATER
     Route: 048
     Dates: start: 20190925, end: 20191011
  3. BOSENTAN TABLET 32 MG PED US [Suspect]
     Active Substance: BOSENTAN
     Dosage: 16 MG, BID
     Route: 048
     Dates: start: 201706
  4. CATAPRES [Concomitant]
     Active Substance: CLONIDINE HYDROCHLORIDE
     Dosage: 3 ML, TID
  5. ZOFRAN [Concomitant]
     Active Substance: ONDANSETRON HYDROCHLORIDE
     Indication: VOMITING
  6. CULTURELLE FOR KIDS [Concomitant]
     Dosage: 1.5 G BY G-TUBE, QD
  7. DIAZEPAM. [Concomitant]
     Active Substance: DIAZEPAM
     Dosage: 0.8 ML , QID (MAX DOSE 3.2 ML)
  8. ALDACTONE [Concomitant]
     Active Substance: SPIRONOLACTONE
     Dosage: 15 MG PER G-TUBE, BID
  9. TYLENOL [Concomitant]
     Active Substance: ACETAMINOPHEN
     Indication: PYREXIA
     Dosage: 192 MG PER G-TUBE, Q6HRS PRN
  10. PROVENTIL [Concomitant]
     Active Substance: ALBUTEROL
     Indication: WHEEZING
     Dosage: 2.5 MG VIA NEBULIZER, Q4HRS, PRN
     Route: 055
  11. BACTROBAN [Concomitant]
     Active Substance: MUPIROCIN\MUPIROCIN CALCIUM
     Dosage: UNK, BID
     Route: 061
  12. DULCOLAX NOS [Concomitant]
     Active Substance: BISACODYL OR DOCUSATE SODIUM
     Dosage: 2.5 MG SUPPOSITORY, QD, PRN
  13. MAPAP [Concomitant]
     Active Substance: ACETAMINOPHEN
  14. REMODULIN [Suspect]
     Active Substance: TREPROSTINIL
     Dosage: 37.6 - 64.6 NG/KG, PER MIN
     Route: 058
  15. REVATIO [Concomitant]
     Active Substance: SILDENAFIL CITRATE
     Dosage: 15 MG, TID PER G-TUBE
  16. LASIX [Concomitant]
     Active Substance: FUROSEMIDE
     Dosage: 15 MG PER G-TUBE, Q12HRS
  17. NEURONTIN [Concomitant]
     Active Substance: GABAPENTIN
     Dosage: .8 ML, TID
  18. SIMETHICONE (DIMETHICONE) [Concomitant]
     Active Substance: DIMETHICONE
     Dosage: 20 MG PER G-TUBE, QID, PRN
  19. GLYCOLAX [Concomitant]
     Active Substance: POLYETHYLENE GLYCOL 3350
     Dosage: 4.25 G, PRN (GIVE IF NO BOWEL MOVEMENT FOR 3 DAYS)
  20. ZOFRAN [Concomitant]
     Active Substance: ONDANSETRON HYDROCHLORIDE
     Indication: NAUSEA
     Dosage: 2.5 ML VIA G-TUBE, Q8HRS, PRN
  21. PEPTAMEN JUNIOR [Concomitant]
     Active Substance: DIETARY SUPPLEMENT
     Dosage: 3 CANS PER DAY VIA G-TUBE
  22. CRITIC-AID [Concomitant]
  23. NEURONTIN [Concomitant]
     Active Substance: GABAPENTIN
     Dosage: 1 ML, TID
  24. PROVENTIL [Concomitant]
     Active Substance: ALBUTEROL
     Indication: DYSPNOEA
  25. HYDROGEN PEROXIDE. [Concomitant]
     Active Substance: HYDROGEN PEROXIDE
  26. REMODULIN [Suspect]
     Active Substance: TREPROSTINIL
     Indication: PRODUCT USED FOR UNKNOWN INDICATION
     Dosage: 50 MG/KG, UNK
     Route: 065
  27. PROTONIX [Concomitant]
     Active Substance: PANTOPRAZOLE SODIUM
     Dosage: 15.5 MG PER G-TUBE, BID
  28. HYDROCORTISONE 1% IN ABSORBASE [Concomitant]
     Active Substance: HYDROCORTISONE
     Dosage: UNK, BID
     Route: 061
  29. REMODULIN [Suspect]
     Active Substance: TREPROSTINIL
     Dosage: 48.4 NG/KG, PER MIN
     Route: 058
  30. REGLAN [Concomitant]
     Active Substance: METOCLOPRAMIDE HYDROCHLORIDE
     Dosage: 3.1 MG, QID BEFORE MEALS AND NIGHTLY
  31. PEDIALYTE [Concomitant]
     Active Substance: POTASSIUM CITRATE\SODIUM CITRATE\ZINC
     Indication: FEEDING INTOLERANCE
     Dosage: UNK, PRN
  32. MYCOSTATIN [Concomitant]
     Active Substance: NYSTATIN
     Indication: DERMATITIS DIAPER
     Dosage: APPLY WITH EACH DIAPER CHANGE, PRN
     Route: 061
  33. SODIUM CHLORIDE. [Concomitant]
     Active Substance: SODIUM CHLORIDE
     Indication: COUGH
     Dosage: 1 VIA NEBULIZER WITH MANUAL CUPPING, QID + Q4HRS, PRN
     Route: 055
  34. ASPIRIN. [Concomitant]
     Active Substance: ASPIRIN
     Dosage: 40.5 MG, QD VIA G-TUBE
  35. PERIACTIN [Concomitant]
     Active Substance: CYPROHEPTADINE HYDROCHLORIDE
     Dosage: 1 MG PER G-TUBE, BID
  36. CETIRIZINE [Concomitant]
     Active Substance: CETIRIZINE HYDROCHLORIDE
     Dosage: 2.5 MG PER G-TUBE, QD

REACTIONS (11)
  - Vomiting [Unknown]
  - Acute respiratory failure [Fatal]
  - Catheter site pain [Unknown]
  - Catheter site discharge [Unknown]
  - Flushing [Unknown]
  - Infusion site pain [Unknown]
  - Feeling hot [Unknown]
  - Pyrexia [Recovered/Resolved]
  - Catheter site swelling [Unknown]
  - Catheter site haemorrhage [Unknown]
  - Tracheostomy malfunction [Fatal]

NARRATIVE: CASE EVENT DATE: 20180615
